FAERS Safety Report 25842784 (Version 1)
Quarter: 2025Q3

REPORT INFORMATION
  Report Type: Spontaneous
  Country: US (occurrence: US)
  Receive Date: 20250924
  Receipt Date: 20250924
  Transmission Date: 20251021
  Serious: No
  Sender: CALLIDITAS THERAPEUTICS AB
  Company Number: US-Calliditas-2025CAL02931

PATIENT
  Age: 47 Year
  Sex: Male

DRUGS (8)
  1. TARPEYO [Suspect]
     Active Substance: BUDESONIDE
     Indication: IgA nephropathy
     Route: 048
     Dates: start: 20250801
  2. ALLOPURINOL [Concomitant]
     Active Substance: ALLOPURINOL
  3. FLORASTOR [SACCHAROMYCES BOULARDII] [Concomitant]
  4. LOSARTAN [Concomitant]
     Active Substance: LOSARTAN
  5. MULTIVITAMINS WITH MINERALS [ASCORBIC ACID;CALCIUM PANTOTHENATE;CYA... [Concomitant]
  6. HERBALS\HOMEOPATHICS\GOLDENSEAL [Concomitant]
     Active Substance: HERBALS\HOMEOPATHICS\GOLDENSEAL
  7. VITAMIN D3 [Concomitant]
     Active Substance: CHOLECALCIFEROL
  8. ZINC GLUCONATE [Concomitant]
     Active Substance: ZINC GLUCONATE

REACTIONS (2)
  - Peripheral swelling [Recovering/Resolving]
  - Nocturia [Not Recovered/Not Resolved]
